FAERS Safety Report 16779847 (Version 1)
Quarter: 2019Q3

REPORT INFORMATION
  Report Type: Spontaneous
  Country: FR (occurrence: FR)
  Receive Date: 20190906
  Receipt Date: 20190906
  Transmission Date: 20191005
  Serious: Yes (Hospitalization)
  Sender: FDA-Public Use
  Company Number: FR-TEVA-2019-FR-1101690

PATIENT
  Age: 47 Year
  Sex: Male

DRUGS (1)
  1. ATAZANAVIR. [Suspect]
     Active Substance: ATAZANAVIR
     Indication: HIV INFECTION
     Dosage: UNINFORMED
     Route: 048
     Dates: start: 20061226, end: 20120326

REACTIONS (3)
  - Renal atrophy [Not Recovered/Not Resolved]
  - Haematuria [Recovering/Resolving]
  - Nephrolithiasis [Recovering/Resolving]

NARRATIVE: CASE EVENT DATE: 201308
